FAERS Safety Report 8379416-7 (Version None)
Quarter: 2012Q1

REPORT INFORMATION
  Report Type: 
  Country: None (occurrence: None)
  Receive Date: 20120323
  Receipt Date: 20110419
  Transmission Date: 20120608
  Serious: Yes (Other)
  Sender: FDA-Public Use
  Company Number: 163-21880-11042495

PATIENT
  Age: 68 Year
  Sex: Female

DRUGS (12)
  1. LEVOTHYROXINE SODIUM [Concomitant]
  2. OMEPRAZOLE [Concomitant]
  3. LORAZEPAM [Concomitant]
  4. REVLIMID [Suspect]
     Indication: MULTIPLE MYELOMA
     Dosage: 25 MG, DAILY X 21D/28D, PO; 10 MG, DAILY X21D/28D, PO
     Route: 048
     Dates: start: 20090301, end: 20090501
  5. REVLIMID [Suspect]
     Indication: MULTIPLE MYELOMA
     Dosage: 25 MG, DAILY X 21D/28D, PO; 10 MG, DAILY X21D/28D, PO
     Route: 048
     Dates: start: 20090501, end: 20091201
  6. DICLOFENAC [Concomitant]
  7. CARISOPRODOL [Concomitant]
  8. LISINOPRIL [Concomitant]
  9. FLUTICASONE FUROATE [Concomitant]
  10. ESCITALOPRAM [Concomitant]
  11. SIMVASTATIN [Concomitant]
  12. HYDROCHLOROTHIAZIDE [Concomitant]

REACTIONS (3)
  - PYREXIA [None]
  - MYALGIA [None]
  - DEEP VEIN THROMBOSIS [None]
